FAERS Safety Report 23243487 (Version 1)
Quarter: 2023Q4

REPORT INFORMATION
  Report Type: Spontaneous
  Country: FR (occurrence: FR)
  Receive Date: 20231130
  Receipt Date: 20231130
  Transmission Date: 20240109
  Serious: Yes (Other)
  Sender: FDA-Public Use
  Company Number: None

PATIENT
  Age: 49 Year
  Sex: Female
  Weight: 72 kg

DRUGS (4)
  1. CAPECITABINE [Suspect]
     Active Substance: CAPECITABINE
     Indication: Breast cancer metastatic
     Dosage: 500 MG MORNING AND EVENING?DAILY DOSE: 1 GRAM
     Route: 048
     Dates: start: 20231009
  2. CAPECITABINE [Suspect]
     Active Substance: CAPECITABINE
     Indication: Breast cancer metastatic
     Dosage: DAILY DOSE: 600 MILLIGRAM
     Route: 048
     Dates: start: 20231030
  3. HERCEPTIN [Suspect]
     Active Substance: TRASTUZUMAB
     Indication: Breast cancer metastatic
     Dosage: DOSAGE UNKNOWN, INTRAVENOUS DRIP
     Route: 042
     Dates: start: 20231009
  4. TUKYSA [Suspect]
     Active Substance: TUCATINIB
     Indication: Breast cancer metastatic
     Dosage: 2X150 MG MORNING AND EVENING?DAILY DOSE: 600 MILLIGRAM
     Route: 048
     Dates: start: 20231009

REACTIONS (2)
  - Muscle spasms [Not Recovered/Not Resolved]
  - Diarrhoea [Unknown]

NARRATIVE: CASE EVENT DATE: 20231009
